FAERS Safety Report 6866433-9 (Version None)
Quarter: 2010Q3

REPORT INFORMATION
  Report Type: 
  Country: None (occurrence: None)
  Receive Date: 20100722
  Receipt Date: 20100708
  Transmission Date: 20110219
  Serious: No
  Sender: FDA-Public Use
  Company Number: PHHY2010IT16061

PATIENT
  Sex: Male

DRUGS (4)
  1. GLEEVEC [Suspect]
     Indication: CHRONIC MYELOID LEUKAEMIA
     Dosage: 400 MG DAILY
     Route: 048
     Dates: start: 20090921, end: 20100311
  2. AULIN [Concomitant]
     Dosage: 100 MG, UNK
     Route: 048
  3. ZYLORIC [Concomitant]
     Dosage: 300 MG
     Route: 048
  4. DEURSIL [Concomitant]
     Dosage: 450 MG
     Route: 048

REACTIONS (1)
  - ASPIRATION BONE MARROW ABNORMAL [None]
